FAERS Safety Report 6164013-4 (Version None)
Quarter: 2009Q2

REPORT INFORMATION
  Report Type: 
  Country: None (occurrence: None)
  Receive Date: 20090420
  Receipt Date: 20090406
  Transmission Date: 20091009
  Serious: Yes (Hospitalization)
  Sender: FDA-Public Use
  Company Number: 2009-01222

PATIENT
  Age: 65 Year
  Sex: Female
  Weight: 58.7 kg

DRUGS (8)
  1. VELCADE [Suspect]
     Indication: MULTIPLE MYELOMA
     Dosage: UNK UNK INTRAVENOUS
     Route: 042
     Dates: start: 20090317, end: 20090327
  2. IDARUBICIN HCL [Suspect]
     Indication: MULTIPLE MYELOMA
     Dosage: UNK UNK INTRAVENOUS
     Route: 042
     Dates: start: 20090320, end: 20090321
  3. MELPHALAN (MELPHALAN) VIAL [Suspect]
     Indication: MULTIPLE MYELOMA
     Dosage: UNK UNK INTRAVENOUS
     Route: 042
     Dates: start: 20090320, end: 20090320
  4. CLARITHROYCIN (CLARITHROMYCIN) [Concomitant]
  5. MORPHINE SULFATE INJ [Concomitant]
  6. AQUEOUS CREAM (PARAFFIN, LIQUID, EMULSIFYING WAX, WHITE SOFT PARAFFIN) [Concomitant]
  7. LANSOPRAZOLE [Concomitant]
  8. CANDESARTAN CILEXETIL [Concomitant]

REACTIONS (5)
  - CONSTIPATION [None]
  - DEHYDRATION [None]
  - NAUSEA [None]
  - PAIN [None]
  - VOMITING [None]
